FAERS Safety Report 5479356-7 (Version None)
Quarter: 2007Q4

REPORT INFORMATION
  Report Type: 
  Country: None (occurrence: None)
  Receive Date: 20071003
  Receipt Date: 20070918
  Transmission Date: 20080405
  Serious: Yes (Other)
  Sender: FDA-Public Use
  Company Number: 2007US002256

PATIENT
  Age: 9 Month
  Sex: Female
  Weight: 5.6 kg

DRUGS (3)
  1. AMBISOME [Suspect]
     Indication: FUNGAL INFECTION
     Dosage: 25 MG, UID/QD, IV NOS
     Route: 042
     Dates: start: 20070918
  2. NYSTATIN [Concomitant]
  3. URSODIOL (URSODEOXYCHOLIC ACID) [Concomitant]

REACTIONS (2)
  - ACCIDENTAL OVERDOSE [None]
  - INCORRECT DRUG ADMINISTRATION DURATION [None]
